FAERS Safety Report 9407971 (Version 2)
Quarter: 2013Q3

REPORT INFORMATION
  Report Type: Spontaneous
  Country: US (occurrence: US)
  Receive Date: 20130718
  Receipt Date: 20130722
  Transmission Date: 20140515
  Serious: Yes (Hospitalization, Other)
  Sender: FDA-Public Use
  Company Number: US-ROCHE-1249090

PATIENT
  Age: 53 Year
  Sex: Female

DRUGS (10)
  1. XOLAIR [Suspect]
     Indication: ASTHMA
     Route: 058
     Dates: start: 201111
  2. XOLAIR [Suspect]
     Route: 058
     Dates: start: 20130301
  3. DETROL [Concomitant]
     Route: 065
  4. SINGULAIR [Concomitant]
     Indication: ASTHMA
     Route: 065
  5. SINGULAIR [Concomitant]
     Indication: HYPERSENSITIVITY
  6. XYZAL [Concomitant]
     Indication: ASTHMA
     Route: 065
  7. XYZAL [Concomitant]
     Indication: HYPERSENSITIVITY
  8. ZANTAC [Concomitant]
     Indication: HYPERSENSITIVITY
     Route: 065
  9. SOMA (UNITED STATES) [Concomitant]
     Indication: MUSCLE RELAXANT THERAPY
     Route: 065
  10. METFORMIN ER [Concomitant]
     Indication: DIABETES MELLITUS
     Route: 065

REACTIONS (12)
  - Anaphylactic reaction [Recovered/Resolved]
  - Dyspnoea [Recovered/Resolved]
  - Dysarthria [Recovered/Resolved]
  - Movement disorder [Unknown]
  - Ataxia [Unknown]
  - Nerve injury [Not Recovered/Not Resolved]
  - Road traffic accident [Unknown]
  - Brain injury [Unknown]
  - Balance disorder [Unknown]
  - Rehabilitation therapy [Unknown]
  - Asthenia [Unknown]
  - Nervous system disorder [Unknown]
